FAERS Safety Report 4811884-7 (Version None)
Quarter: 2005Q4

REPORT INFORMATION
  Report Type: 
  Country: None (occurrence: None)
  Receive Date: 20051026
  Receipt Date: 20051012
  Transmission Date: 20060501
  Serious: Yes (Other)
  Sender: FDA-Public Use
  Company Number: 2005141975

PATIENT
  Age: 29 Year
  Sex: Male

DRUGS (5)
  1. DOXORUBICIN HCL [Suspect]
  2. VINCRISTINE [Suspect]
  3. CYCLOPHOSPHAMIDE [Concomitant]
  4. PREDNISONE [Concomitant]
  5. RITUXIMAB (RITUXIMAB) [Concomitant]

REACTIONS (3)
  - BLOOD PRESSURE INCREASED [None]
  - ERYTHEMA [None]
  - HEART RATE INCREASED [None]
